FAERS Safety Report 5228432-2 (Version None)
Quarter: 2007Q1

REPORT INFORMATION
  Report Type: 
  Country: None (occurrence: None)
  Receive Date: 20070205
  Receipt Date: 20070125
  Transmission Date: 20070707
  Serious: Yes (Death, Life-Threatening, Hospitalization, Other)
  Sender: FDA-Public Use
  Company Number: JP-BRISTOL-MYERS SQUIBB COMPANY-13665328

PATIENT
  Age: 73 Year
  Sex: Male
  Weight: 49 kg

DRUGS (9)
  1. ENDOXAN [Suspect]
     Indication: RHEUMATOID ARTHRITIS
     Route: 042
     Dates: start: 20050707
  2. ENBREL [Suspect]
     Indication: RHEUMATOID ARTHRITIS
     Route: 058
     Dates: start: 20050510, end: 20050816
  3. SOLU-MEDROL [Suspect]
     Indication: RHEUMATOID ARTHRITIS
     Route: 048
     Dates: start: 20050426, end: 20050519
  4. BETAMETHASONE SODIUM PHOSPHATE [Suspect]
     Indication: RHEUMATOID ARTHRITIS
     Route: 048
     Dates: start: 20050702
  5. AMPHOTERICIN B [Concomitant]
     Dates: start: 20050426
  6. SODIUM ALGINATE [Concomitant]
  7. MOBIC [Concomitant]
     Dates: start: 20050422
  8. MAGNESIUM OXIDE [Concomitant]
  9. ALLOID [Concomitant]

REACTIONS (14)
  - ACUTE RESPIRATORY DISTRESS SYNDROME [None]
  - CARDIO-RESPIRATORY ARREST [None]
  - CYTOMEGALOVIRUS INFECTION [None]
  - DISSEMINATED INTRAVASCULAR COAGULATION [None]
  - INFLAMMATION [None]
  - LYMPHOCYTE PERCENTAGE DECREASED [None]
  - MULTI-ORGAN FAILURE [None]
  - NEUTROPHIL PERCENTAGE INCREASED [None]
  - PNEUMOCYSTIS JIROVECI PNEUMONIA [None]
  - PSEUDOMONAS INFECTION [None]
  - PULMONARY ALVEOLAR HAEMORRHAGE [None]
  - SPUTUM CULTURE POSITIVE [None]
  - STAPHYLOCOCCAL INFECTION [None]
  - WHITE BLOOD CELL COUNT INCREASED [None]
